FAERS Safety Report 12716160 (Version 16)
Quarter: 2020Q1

REPORT INFORMATION
  Report Type: Report from Study
  Country: CA (occurrence: CA)
  Receive Date: 20160906
  Receipt Date: 20200121
  Transmission Date: 20200409
  Serious: Yes (Hospitalization, Other)
  Sender: FDA-Public Use
  Company Number: PHHY2015CA007006

PATIENT
  Age: 68 Year
  Sex: Male

DRUGS (2)
  1. SANDOSTATIN LAR DEPOT [Suspect]
     Active Substance: OCTREOTIDE ACETATE
     Indication: NEUROENDOCRINE TUMOUR
     Dosage: 30 MG, QMO (EVERY 4 WEEKS)
     Route: 030
     Dates: start: 20141218
  2. SANDOSTATIN [Suspect]
     Active Substance: OCTREOTIDE ACETATE
     Indication: NEUROENDOCRINE TUMOUR
     Dosage: 100 UG, Q8H
     Route: 058
     Dates: start: 20141211

REACTIONS (29)
  - Delirium [Unknown]
  - Hypothyroidism [Unknown]
  - Metastases to bone [Unknown]
  - Blood pressure diastolic increased [Unknown]
  - Injection site haemorrhage [Recovered/Resolved]
  - Abdominal pain [Not Recovered/Not Resolved]
  - Feeling cold [Unknown]
  - Malignant neoplasm progression [Unknown]
  - Blood pressure decreased [Unknown]
  - Arthralgia [Not Recovered/Not Resolved]
  - Oedema peripheral [Recovering/Resolving]
  - Heart rate increased [Unknown]
  - Haemoglobin decreased [Unknown]
  - Necrosis [Unknown]
  - Injection site pain [Recovered/Resolved]
  - Musculoskeletal stiffness [Unknown]
  - Malaise [Unknown]
  - Body temperature decreased [Unknown]
  - Injection site haemorrhage [Unknown]
  - Cholelithiasis [Unknown]
  - Osteoarthritis [Unknown]
  - Wrist fracture [Unknown]
  - Anxiety [Unknown]
  - Tinnitus [Unknown]
  - Blood glucose increased [Unknown]
  - Pain [Unknown]
  - Blood pressure increased [Unknown]
  - Balance disorder [Unknown]
  - Gallbladder disorder [Unknown]

NARRATIVE: CASE EVENT DATE: 20150118
